FAERS Safety Report 23762062 (Version 1)
Quarter: 2024Q2

REPORT INFORMATION
  Report Type: Spontaneous
  Country: US (occurrence: US)
  Receive Date: 20240419
  Receipt Date: 20240419
  Transmission Date: 20240716
  Serious: No
  Sender: FDA-Public Use
  Company Number: US-ELI_LILLY_AND_COMPANY-US202404012628

PATIENT
  Age: 54 Year
  Sex: Male

DRUGS (2)
  1. INSULIN LISPRO [Suspect]
     Active Substance: INSULIN LISPRO
     Indication: Type 2 diabetes mellitus
     Dosage: UNK UNK, UNKNOWN
     Route: 058
  2. SEMGLEE [INSULIN GLARGINE YFGN] [Concomitant]
     Indication: Type 2 diabetes mellitus

REACTIONS (3)
  - Blood glucose increased [Unknown]
  - Incorrect dosage administered [Unknown]
  - Blood glucose decreased [Recovered/Resolved]
